FAERS Safety Report 17845599 (Version 1)
Quarter: 2020Q2

REPORT INFORMATION
  Report Type: Spontaneous
  Country: US (occurrence: US)
  Receive Date: 20200529
  Receipt Date: 20200529
  Transmission Date: 20200714
  Serious: Yes (Death)
  Sender: FDA-Public Use
  Company Number: None

PATIENT
  Sex: Female

DRUGS (27)
  1. MEKINIST [Suspect]
     Active Substance: TRAMETINIB DIMETHYL SULFOXIDE
     Indication: OVARIAN CANCER
     Route: 048
     Dates: start: 202001, end: 202004
  2. OXYCODONE [Concomitant]
     Active Substance: OXYCODONE
  3. OXYCODONE AND ACETAMINOPHEN [Concomitant]
     Active Substance: ACETAMINOPHEN\OXYCODONE HYDROCHLORIDE
  4. BUPRENORPHIN [Concomitant]
     Active Substance: BUPRENORPHINE
  5. DOK [Concomitant]
     Active Substance: DOCUSATE SODIUM
  6. AMOXICILLIN. [Concomitant]
     Active Substance: AMOXICILLIN
  7. BANOPHEN [Concomitant]
     Active Substance: DIPHENHYDRAMINE HYDROCHLORIDE
  8. IBUPROFEN. [Concomitant]
     Active Substance: IBUPROFEN
  9. DEXAMETHASON [Concomitant]
     Active Substance: DEXAMETHASONE
  10. NYSTOP [Concomitant]
     Active Substance: NYSTATIN
  11. PREDNISONE. [Concomitant]
     Active Substance: PREDNISONE
  12. PROCHLORPER [Concomitant]
  13. LORAZEPAM. [Concomitant]
     Active Substance: LORAZEPAM
  14. BISACODYL. [Concomitant]
     Active Substance: BISACODYL
  15. CAPECITABINE. [Concomitant]
     Active Substance: CAPECITABINE
  16. CEPHALEXIN. [Concomitant]
     Active Substance: CEPHALEXIN
  17. DOXYCYCL HYC [Concomitant]
  18. FLEET ENEMA [Concomitant]
     Active Substance: SODIUM PHOSPHATE, DIBASIC\SODIUM PHOSPHATE, MONOBASIC
  19. GABAPENTIN. [Concomitant]
     Active Substance: GABAPENTIN
  20. AMLODIPINE [Concomitant]
     Active Substance: AMLODIPINE BESYLATE
  21. PROCHLORPER [Concomitant]
  22. ONDANSETRON [Concomitant]
     Active Substance: ONDANSETRON
  23. OMEPRAZOLE. [Concomitant]
     Active Substance: OMEPRAZOLE
  24. BUTRANS [Concomitant]
     Active Substance: BUPRENORPHINE
  25. PH MILK MAGN SUSU CHERRY [Concomitant]
  26. SMZ/TMP [Concomitant]
     Active Substance: SULFAMETHOXAZOLE\TRIMETHOPRIM
  27. TRAZODONE [Concomitant]
     Active Substance: TRAZODONE HYDROCHLORIDE

REACTIONS (1)
  - Death [None]
